FAERS Safety Report 7378586-7 (Version None)
Quarter: 2011Q1

REPORT INFORMATION
  Report Type: 
  Country: None (occurrence: None)
  Receive Date: 20110328
  Receipt Date: 20110317
  Transmission Date: 20110831
  Serious: Yes (Life-Threatening, Hospitalization, Other)
  Sender: FDA-Public Use
  Company Number: A0916758A

PATIENT
  Age: 9 Year
  Sex: Male
  Weight: 26.2 kg

DRUGS (22)
  1. D5W 1/2NS [Concomitant]
  2. ACETAMINOPHEN [Concomitant]
  3. METRONIDAZOLE [Concomitant]
  4. FENTANYL [Concomitant]
  5. VITAMIN K TAB [Concomitant]
  6. CELECOXIB [Concomitant]
  7. ARZERRA [Suspect]
     Dosage: 100MG SINGLE DOSE
     Route: 042
     Dates: start: 20110303, end: 20110303
  8. VANCOMYCIN [Concomitant]
  9. LANSOPRAZOLE [Concomitant]
  10. ONDANSETRON [Concomitant]
  11. FOLIC ACID [Concomitant]
  12. PIPERACILLIN AND TAZOBACTAM [Concomitant]
  13. MULTI-VITAMIN [Concomitant]
  14. PENTAMIDINE ISETHIONATE [Concomitant]
  15. MORPHINE SULFATE [Concomitant]
  16. RADIATION [Suspect]
     Route: 065
     Dates: end: 20110302
  17. OMEPRAZOLE [Concomitant]
  18. FILGRASTIM [Concomitant]
  19. DIPHENHYDRAMINE HCL [Concomitant]
  20. HYDROCORTISONE [Concomitant]
  21. ACYCLOVIR [Concomitant]
  22. POTASSIUM CHLORIDE [Concomitant]

REACTIONS (10)
  - ELECTROCARDIOGRAM QT PROLONGED [None]
  - HYPOKALAEMIA [None]
  - HYPOTHERMIA [None]
  - BLOOD CALCIUM DECREASED [None]
  - BRADYCARDIA [None]
  - OFF LABEL USE [None]
  - ATRIOVENTRICULAR BLOCK SECOND DEGREE [None]
  - HEART RATE DECREASED [None]
  - WANDERING PACEMAKER [None]
  - ARRHYTHMIA [None]
